FAERS Safety Report 5138170-2 (Version None)
Quarter: 2006Q4

REPORT INFORMATION
  Report Type: 
  Country: None (occurrence: None)
  Receive Date: 20061030
  Receipt Date: 20061016
  Transmission Date: 20070319
  Serious: Yes (Hospitalization)
  Sender: FDA-Public Use
  Company Number: US-JNJFOC-20061005433

PATIENT
  Age: 59 Year
  Sex: Male

DRUGS (7)
  1. TRAMADOL HCL [Suspect]
     Indication: DRUG USE FOR UNKNOWN INDICATION
     Route: 048
  2. APAP TAB [Suspect]
  3. APAP TAB [Suspect]
     Indication: DRUG USE FOR UNKNOWN INDICATION
  4. ETHANOL [Suspect]
     Indication: DRUG USE FOR UNKNOWN INDICATION
  5. ACETAMINOPHEN AND HYDROCODONE BITARTRATE [Concomitant]
  6. SULFASALAZINE [Concomitant]
  7. SSRI [Concomitant]

REACTIONS (8)
  - CONFUSIONAL STATE [None]
  - DEPRESSED MOOD [None]
  - HEPATOTOXICITY [None]
  - LETHARGY [None]
  - LIVER FUNCTION TEST ABNORMAL [None]
  - MENTAL STATUS CHANGES [None]
  - MULTIPLE DRUG OVERDOSE [None]
  - NAUSEA [None]
